FAERS Safety Report 6474870-X (Version None)
Quarter: 2009Q4

REPORT INFORMATION
  Report Type: 
  Country: None (occurrence: None)
  Receive Date: 20091204
  Receipt Date: 20090424
  Transmission Date: 20100525
  Serious: Yes (Hospitalization)
  Sender: FDA-Public Use
  Company Number: US-ELI_LILLY_AND_COMPANY-US200902006005

PATIENT
  Sex: Female
  Weight: 84.807 kg

DRUGS (26)
  1. FORTEO [Suspect]
     Indication: OSTEOPOROSIS
     Dosage: 20 UG, DAILY (1/D)
     Dates: start: 20080901
  2. PREDNISONE [Concomitant]
  3. LEVAQUIN [Concomitant]
  4. XANAX [Concomitant]
  5. DUONEB [Concomitant]
  6. PULMICORT [Concomitant]
  7. ABILIFY [Concomitant]
  8. CALCIUM [Concomitant]
  9. VITAMIN D [Concomitant]
  10. CENTRUM [Concomitant]
  11. EFFEXOR [Concomitant]
  12. GAS X [Concomitant]
  13. KLONOPIN [Concomitant]
  14. LAMICTAL [Concomitant]
  15. LISINOPRIL [Concomitant]
  16. LORCET-HD [Concomitant]
  17. LYRICA [Concomitant]
  18. METHADONE [Concomitant]
  19. METOPROLOL [Concomitant]
  20. PROTONIX [Concomitant]
  21. PRILOSEC [Concomitant]
  22. REQUIP [Concomitant]
  23. SIMVASTATIN [Concomitant]
  24. TRAZODONE [Concomitant]
  25. VITAMIN B-12 [Concomitant]
  26. BACLOFEN [Concomitant]

REACTIONS (3)
  - MEDICAL DEVICE REMOVAL [None]
  - PNEUMONIA [None]
  - UPPER RESPIRATORY TRACT INFECTION [None]
